FAERS Safety Report 4403486-1 (Version None)
Quarter: 2004Q3

REPORT INFORMATION
  Report Type: 
  Country: None (occurrence: None)
  Receive Date: 20040721
  Receipt Date: 20040625
  Transmission Date: 20050211
  Serious: Yes (Hospitalization)
  Sender: FDA-Public Use
  Company Number: CH-BRISTOL-MYERS SQUIBB COMPANY-12629937

PATIENT
  Age: 54 Year
  Sex: Male

DRUGS (11)
  1. STOCRIN TABS 600 MG [Suspect]
     Indication: HIV INFECTION
     Route: 048
     Dates: start: 20010101, end: 20040601
  2. PLAVIX [Interacting]
     Route: 048
     Dates: start: 20031201
  3. DOXIUM [Concomitant]
     Indication: VENOUS INSUFFICIENCY
     Route: 048
  4. DILATREND [Concomitant]
     Indication: HYPERTENSION
     Route: 048
  5. MOTILIUM [Concomitant]
     Indication: NAUSEA
     Route: 048
  6. LAMIVUDINE [Concomitant]
  7. ZESTRIL [Concomitant]
     Indication: HYPERTENSION
     Route: 048
  8. FRAXIPARINE [Concomitant]
     Indication: THROMBOSIS PROPHYLAXIS
     Route: 058
  9. MARCOUMAR [Concomitant]
     Indication: THROMBOSIS PROPHYLAXIS
     Route: 048
  10. PRAVASTATIN SODIUM [Concomitant]
  11. ZIDOVUDINE [Concomitant]

REACTIONS (3)
  - DRUG INEFFECTIVE [None]
  - DRUG INTERACTION [None]
  - STENT OCCLUSION [None]
